FAERS Safety Report 4842502-X (Version None)
Quarter: 2005Q4

REPORT INFORMATION
  Report Type: 
  Country: None (occurrence: None)
  Receive Date: 20051129
  Receipt Date: 20051116
  Transmission Date: 20060501
  Serious: Yes (Hospitalization, Other)
  Sender: FDA-Public Use
  Company Number: 2005157696

PATIENT
  Age: 59 Year
  Sex: Male
  Weight: 114 kg

DRUGS (6)
  1. TIKOSYN [Suspect]
     Indication: ATRIAL FIBRILLATION
     Dosage: ORAL
     Route: 048
     Dates: start: 20051114
  2. COUMADIN [Concomitant]
  3. CARDIZEM [Concomitant]
  4. NORCO [Concomitant]
  5. ACETAMINOPHEN [Concomitant]
  6. RESTORIL [Concomitant]

REACTIONS (2)
  - ALANINE AMINOTRANSFERASE INCREASED [None]
  - ASPARTATE AMINOTRANSFERASE INCREASED [None]
